FAERS Safety Report 20331698 (Version 1)
Quarter: 2022Q1

REPORT INFORMATION
  Report Type: Spontaneous
  Country: CA (occurrence: CA)
  Receive Date: 20220113
  Receipt Date: 20220113
  Transmission Date: 20220423
  Serious: Yes (Death, Other)
  Sender: FDA-Public Use
  Company Number: CA-TEVA-2022-CA-1998127

PATIENT
  Age: 62 Year
  Sex: Female

DRUGS (2)
  1. MEMANTINE [Suspect]
     Active Substance: MEMANTINE
     Indication: Frontotemporal dementia
     Route: 065
  2. ARICEPT [Suspect]
     Active Substance: DONEPEZIL HYDROCHLORIDE
     Indication: Frontotemporal dementia
     Route: 065

REACTIONS (3)
  - Off label use [Fatal]
  - Drug ineffective for unapproved indication [Fatal]
  - Death [Fatal]
